FAERS Safety Report 10598497 (Version 1)
Quarter: 2014Q4

REPORT INFORMATION
  Report Type: Spontaneous
  Country: US (occurrence: None)
  Receive Date: 20141119
  Receipt Date: 20141119
  Transmission Date: 20150529
  Serious: Yes (Other)
  Sender: FDA-Public Use
  Company Number: 1713747-2014-999120

PATIENT
  Sex: Male

DRUGS (3)
  1. LIBERY CYCLER [Concomitant]
  2. LIBERTY TUBING [Concomitant]
  3. DELFLEX [Suspect]
     Active Substance: CALCIUM CHLORIDE\DEXTROSE MONOHYDRATE\MAGNESIUM CHLORIDE\SODIUM CHLORIDE\SODIUM LACTATE
     Indication: PERITONEAL DIALYSIS
     Dosage: IP

REACTIONS (1)
  - Peritonitis [None]

NARRATIVE: CASE EVENT DATE: 20140707
